FAERS Safety Report 6683469-1 (Version None)
Quarter: 2010Q2

REPORT INFORMATION
  Report Type: 
  Country: None (occurrence: None)
  Receive Date: 20100415
  Receipt Date: 20100407
  Transmission Date: 20101027
  Serious: Yes (Life-Threatening, Disabling, Other)
  Sender: FDA-Public Use
  Company Number: GB-AMGEN-QUU393857

PATIENT
  Sex: Male
  Weight: 60 kg

DRUGS (6)
  1. NPLATE [Suspect]
     Indication: IDIOPATHIC THROMBOCYTOPENIC PURPURA
     Route: 042
     Dates: start: 20091016, end: 20100129
  2. MYCOPHENOLATE MOFETIL [Concomitant]
     Route: 048
     Dates: start: 20090601, end: 20100312
  3. TRANEXAMIC ACID [Concomitant]
     Route: 048
     Dates: start: 20100201
  4. LANSOPRAZOLE [Concomitant]
     Route: 048
     Dates: start: 20090101
  5. AMLODIPINE [Concomitant]
     Route: 048
     Dates: start: 20080101
  6. IMMU-G [Concomitant]

REACTIONS (9)
  - CONDITION AGGRAVATED [None]
  - CONTUSION [None]
  - DRUG INEFFECTIVE [None]
  - HAEMORRHAGE [None]
  - HAEMORRHAGIC DISORDER [None]
  - PLATELET COUNT DECREASED [None]
  - THERAPEUTIC RESPONSE DECREASED [None]
  - THROMBOCYTOPENIA [None]
  - THROMBOCYTOSIS [None]
